FAERS Safety Report 12803149 (Version 3)
Quarter: 2016Q4

REPORT INFORMATION
  Report Type: Spontaneous
  Country: HK (occurrence: HK)
  Receive Date: 20161003
  Receipt Date: 20161021
  Transmission Date: 20170207
  Serious: Yes (Death, Hospitalization, Other)
  Sender: FDA-Public Use
  Company Number: HK-TEVA-696136ISR

PATIENT
  Age: 26 Year
  Sex: Male

DRUGS (3)
  1. CISPLATIN. [Suspect]
     Active Substance: CISPLATIN
     Indication: PINEAL GERMINOMA
     Dosage: 20 MG/M2 DAILY; 20 MG/M2, ON DAY 1-5, ON 3-WEEK CYCLE
     Route: 065
  2. ETOPOSIDE. [Suspect]
     Active Substance: ETOPOSIDE
     Indication: PINEAL GERMINOMA
     Dosage: 100 MG/M2 DAILY; 100 MG/M2 ON DAY 1-5, , ON 3-WEEK CYCLE
     Route: 065
  3. BLEOMYCIN [Suspect]
     Active Substance: BLEOMYCIN SULFATE
     Indication: PINEAL GERMINOMA
     Dosage: 30 MILLIGRAM DAILY; 30 MG ON DAY 2, 6 AND 16 ON 3-WEEK CYCLE
     Route: 065

REACTIONS (4)
  - Lymphopenia [Unknown]
  - Respiratory failure [Fatal]
  - Pneumocystis jirovecii pneumonia [Fatal]
  - Pancytopenia [Unknown]
